FAERS Safety Report 23101856 (Version 2)
Quarter: 2023Q4

REPORT INFORMATION
  Report Type: Spontaneous
  Country: US (occurrence: None)
  Receive Date: 20231025
  Receipt Date: 20231222
  Transmission Date: 20240109
  Serious: Yes (Hospitalization)
  Sender: FDA-Public Use
  Company Number: 2023A238500

PATIENT
  Age: 25918 Day
  Sex: Male

DRUGS (1)
  1. BREZTRI [Suspect]
     Active Substance: BUDESONIDE\FORMOTEROL\GLYCOPYRROLATE
     Indication: Chronic obstructive pulmonary disease
     Dosage: 2 PUFFS BID
     Route: 055

REACTIONS (7)
  - Chronic obstructive pulmonary disease [Unknown]
  - Pneumonia [Unknown]
  - Product dose omission issue [Unknown]
  - Incorrect dose administered by device [Unknown]
  - Device use issue [Unknown]
  - Wrong technique in device usage process [Unknown]
  - Device delivery system issue [Unknown]

NARRATIVE: CASE EVENT DATE: 20231019
